FAERS Safety Report 4967867-X (Version None)
Quarter: 2006Q2

REPORT INFORMATION
  Report Type: 
  Country: None (occurrence: None)
  Receive Date: 20060410
  Receipt Date: 20060102
  Transmission Date: 20061013
  Serious: Yes (Other)
  Sender: FDA-Public Use
  Company Number: PHEH2006US00559

PATIENT
  Sex: Male

DRUGS (1)
  1. FEMARA [Suspect]
     Route: 064

REACTIONS (6)
  - CAESAREAN SECTION [None]
  - DEVELOPMENTAL DELAY [None]
  - DRUG EXPOSURE BEFORE PREGNANCY [None]
  - MATERNAL DRUGS AFFECTING FOETUS [None]
  - PREMATURE BABY [None]
  - RENAL DISORDER [None]
